FAERS Safety Report 25644427 (Version 3)
Quarter: 2025Q4

REPORT INFORMATION
  Report Type: Spontaneous
  Country: US (occurrence: US)
  Receive Date: 20250805
  Receipt Date: 20251202
  Transmission Date: 20260118
  Serious: No
  Sender: PFIZER
  Company Number: US-PFIZER INC-PV202500093020

PATIENT
  Age: 40 Year
  Sex: Female

DRUGS (14)
  1. DOCETAXEL [Suspect]
     Active Substance: DOCETAXEL
     Indication: Hormone receptor positive HER2 negative breast cancer
     Dosage: UNK, SINGLE (CYCLE 1 OF 4 CYCLES, EVERY 3 WEEKS)
     Dates: start: 20180927, end: 20180927
  2. DOCETAXEL [Suspect]
     Active Substance: DOCETAXEL
     Dosage: UNK, SINGLE (CYCLE 2 OF 4 CYCLES, EVERY 3 WEEKS)
     Dates: start: 20181018, end: 20181018
  3. DOCETAXEL [Suspect]
     Active Substance: DOCETAXEL
     Dosage: UNK, SINGLE (CYCLE 3 OF 4 CYCLES, EVERY 3 WEEKS)
     Dates: start: 20181108, end: 20181108
  4. DOCETAXEL [Suspect]
     Active Substance: DOCETAXEL
     Dosage: UNK, SINGLE (CYCLE 4 OF 4 CYCLES, EVERY 3 WEEKS)
     Dates: start: 20181129, end: 20181129
  5. DOCETAXEL [Suspect]
     Active Substance: DOCETAXEL
     Indication: Hormone receptor positive HER2 negative breast cancer
     Dosage: UNK, SINGLE (CYCLE 1 OF 4 CYCLES, EVERY 3 WEEKS)
     Dates: start: 20180927, end: 20180927
  6. DOCETAXEL [Suspect]
     Active Substance: DOCETAXEL
     Dosage: UNK, SINGLE (CYCLE 2 OF 4 CYCLES, EVERY 3 WEEKS)
     Dates: start: 20181018, end: 20181018
  7. DOCETAXEL [Suspect]
     Active Substance: DOCETAXEL
     Dosage: UNK, SINGLE (CYCLE 3 OF 4 CYCLES, EVERY 3 WEEKS)
     Dates: start: 20181108, end: 20181108
  8. DOCETAXEL [Suspect]
     Active Substance: DOCETAXEL
     Dosage: UNK, SINGLE (CYCLE 4 OF 4 CYCLES, EVERY 3 WEEKS)
     Dates: start: 20181129, end: 20181129
  9. DOCETAXEL [Suspect]
     Active Substance: DOCETAXEL
     Indication: Hormone receptor positive HER2 negative breast cancer
     Dosage: UNK, SINGLE (CYCLE 1 OF 4 CYCLES, EVERY 3 WEEKS)
     Dates: start: 20180927, end: 20180927
  10. DOCETAXEL [Suspect]
     Active Substance: DOCETAXEL
     Dosage: UNK, SINGLE (CYCLE 2 OF 4 CYCLES, EVERY 3 WEEKS)
     Dates: start: 20181018, end: 20181018
  11. DOCETAXEL [Suspect]
     Active Substance: DOCETAXEL
     Dosage: UNK, SINGLE (CYCLE 3 OF 4 CYCLES, EVERY 3 WEEKS)
     Dates: start: 20181108, end: 20181108
  12. DOCETAXEL [Suspect]
     Active Substance: DOCETAXEL
     Dosage: UNK, SINGLE (CYCLE 4 OF 4 CYCLES, EVERY 3 WEEKS)
     Dates: start: 20181129, end: 20181129
  13. CYTOXAN [Concomitant]
     Active Substance: CYCLOPHOSPHAMIDE
     Indication: Chemotherapy
     Dosage: UNK
  14. CYCLOPHOSPHAMIDE [Concomitant]
     Active Substance: CYCLOPHOSPHAMIDE
     Indication: Chemotherapy
     Dosage: UNK

REACTIONS (6)
  - Lacrimal structure injury [Unknown]
  - Lacrimation increased [Not Recovered/Not Resolved]
  - Dacryostenosis acquired [Unknown]
  - Depression [Unknown]
  - Anxiety [Unknown]
  - Post-traumatic stress disorder [Unknown]

NARRATIVE: CASE EVENT DATE: 20180101
